FAERS Safety Report 9542175 (Version 4)
Quarter: 2014Q1

REPORT INFORMATION
  Report Type: Report from Study
  Country: US (occurrence: US)
  Receive Date: 20130923
  Receipt Date: 20140224
  Transmission Date: 20141002
  Serious: Yes (Other)
  Sender: FDA-Public Use
  Company Number: US-JNJFOC-20130900058

PATIENT
  Age: 32 Year
  Sex: Female
  Weight: 88.45 kg

DRUGS (11)
  1. REMICADE [Suspect]
     Indication: COLITIS ULCERATIVE
     Dosage: 5 VIALS IN SALINE
     Route: 042
     Dates: start: 201211
  2. REMICADE [Suspect]
     Indication: COLITIS ULCERATIVE
     Dosage: 7 VIALS
     Route: 042
     Dates: start: 20130729, end: 20130729
  3. REMICADE [Suspect]
     Indication: COLITIS ULCERATIVE
     Route: 042
     Dates: start: 20121203
  4. REMICADE [Suspect]
     Indication: COLITIS ULCERATIVE
     Route: 042
     Dates: start: 20120312
  5. REMICADE [Suspect]
     Indication: COLITIS ULCERATIVE
     Route: 042
     Dates: start: 20130618
  6. REMICADE [Suspect]
     Indication: COLITIS ULCERATIVE
     Dosage: 7 VIALS, ONCE
     Route: 042
     Dates: start: 2013, end: 20130805
  7. APRISO [Concomitant]
     Indication: COLITIS ULCERATIVE
     Dosage: EVERY MORNING
     Route: 048
     Dates: start: 2012
  8. SERTRALINE [Concomitant]
     Indication: DEPRESSION
     Dosage: EVERY MORNING
     Route: 065
  9. PREDNISONE [Concomitant]
     Indication: COLITIS ULCERATIVE
     Dosage: EVERY MORNING
     Route: 065
  10. LORATADINE [Concomitant]
     Indication: PREMEDICATION
     Route: 048
  11. TYLENOL [Concomitant]
     Indication: PREMEDICATION
     Route: 048

REACTIONS (11)
  - Arthritis [Not Recovered/Not Resolved]
  - Pruritus [Recovered/Resolved]
  - Urticaria [Recovered/Resolved]
  - Colitis ulcerative [Recovered/Resolved]
  - Paraesthesia [Recovered/Resolved]
  - Rectal haemorrhage [Recovered/Resolved]
  - Pain in extremity [Not Recovered/Not Resolved]
  - Local swelling [Not Recovered/Not Resolved]
  - Oropharyngeal pain [Recovered/Resolved]
  - Back pain [Recovered/Resolved]
  - Myalgia [Recovered/Resolved]
